FAERS Safety Report 10219169 (Version 1)
Quarter: 2014Q2

REPORT INFORMATION
  Report Type: Spontaneous
  Country: US (occurrence: US)
  Receive Date: 20140605
  Receipt Date: 20140605
  Transmission Date: 20141212
  Serious: No
  Sender: FDA-Public Use
  Company Number: US-B.I. PHARMACEUTICALS,INC./RIDGEFIELD-2014-BI-23262BP

PATIENT
  Age: 79 Year
  Sex: Female
  Weight: 80 kg

DRUGS (10)
  1. PRADAXA [Suspect]
     Indication: ATRIAL FIBRILLATION
     Dosage: 300 MG
     Route: 048
     Dates: start: 2010
  2. MULTAQ [Concomitant]
     Indication: CARDIAC DISORDER
     Dosage: 400 MG
     Route: 048
  3. METOPROLOL [Concomitant]
     Indication: CARDIAC DISORDER
     Dosage: 100 MG
     Route: 048
  4. LASIX [Concomitant]
     Indication: HYPERTENSION
     Dosage: 40 MG
     Route: 048
  5. MULTIVITAMIN [Concomitant]
     Route: 048
  6. OMEGA 3 [Concomitant]
     Route: 048
  7. CO-Q-10 [Concomitant]
     Route: 048
  8. B COMPLEX [Concomitant]
     Route: 048
  9. D3 [Concomitant]
     Indication: ROUTINE HEALTH MAINTENANCE
     Route: 048
  10. VITAMIN C [Concomitant]
     Route: 048

REACTIONS (3)
  - Hypoaesthesia [Not Recovered/Not Resolved]
  - Pain in extremity [Not Recovered/Not Resolved]
  - Joint swelling [Not Recovered/Not Resolved]
